FAERS Safety Report 7076213-X (Version None)
Quarter: 2010Q4

REPORT INFORMATION
  Report Type: 
  Country: None (occurrence: None)
  Receive Date: 20101101
  Receipt Date: 20101022
  Transmission Date: 20110411
  Serious: Yes (Other)
  Sender: FDA-Public Use
  Company Number: US-BAYER-201038742NA

PATIENT
  Age: 41 Year
  Sex: Female

DRUGS (1)
  1. YAZ [Suspect]
     Dates: start: 20061204, end: 20061231

REACTIONS (4)
  - COORDINATION ABNORMAL [None]
  - GAIT DISTURBANCE [None]
  - SPEECH DISORDER [None]
  - SUPERIOR SAGITTAL SINUS THROMBOSIS [None]
